FAERS Safety Report 9349331 (Version 1)
Quarter: 2013Q2

REPORT INFORMATION
  Report Type: Spontaneous
  Country: FR (occurrence: FR)
  Receive Date: 20130614
  Receipt Date: 20130614
  Transmission Date: 20140414
  Serious: Yes (Hospitalization)
  Sender: FDA-Public Use
  Company Number: FR-PFIZER INC-2013173330

PATIENT
  Age: 87 Year
  Sex: Female

DRUGS (8)
  1. DALACINE [Suspect]
     Indication: INFECTION
     Dosage: 1800 MG, DAILY
     Route: 048
     Dates: start: 20121003, end: 20121009
  2. FLAGYL [Suspect]
     Indication: DERMO-HYPODERMITIS
     Dosage: 1500 MG, DAILY
     Route: 048
     Dates: start: 20121009, end: 20121014
  3. CEFTRIAXONE PANPHARMA [Suspect]
     Indication: DERMO-HYPODERMITIS
     Dosage: 1 G, 1X/DAY
     Route: 042
     Dates: start: 20121009, end: 20121014
  4. PENICILLINE G ^PANPHARMA^ [Suspect]
     Indication: INFECTION
     Dosage: 20 MILLIONIU, DAILY
     Route: 042
     Dates: start: 20120927, end: 20121003
  5. AMOXYCILLIN/CLAVULANIC ACID BIOGARAN [Concomitant]
     Indication: ERYSIPELAS
     Dosage: 3 G, DAILY
     Route: 048
     Dates: start: 20120917, end: 20120924
  6. TAVANIC [Concomitant]
     Indication: ERYSIPELAS
     Dosage: 1 G, DAILY
     Route: 048
     Dates: start: 20120924, end: 20120927
  7. FUNGIZONE 10% [Concomitant]
     Indication: FUNGAL INFECTION
     Dosage: 1 DF, 3X/DAY
     Route: 048
     Dates: start: 20121011, end: 20121015
  8. DOMPERIDONE ARROW [Concomitant]
     Indication: NAUSEA
     Dosage: 10 MG, 1X/DAY
     Route: 048
     Dates: start: 20121014, end: 20121015

REACTIONS (1)
  - Rash morbilliform [Recovered/Resolved]
